FAERS Safety Report 6023622-3 (Version None)
Quarter: 2008Q4

REPORT INFORMATION
  Report Type: 
  Country: None (occurrence: None)
  Receive Date: 20081230
  Receipt Date: 20081222
  Transmission Date: 20090506
  Serious: Yes (Other)
  Sender: FDA-Public Use
  Company Number: DE-GENENTECH-274424

PATIENT
  Age: 65 Year
  Sex: Female

DRUGS (5)
  1. MABTHERA [Suspect]
     Indication: B-CELL LYMPHOMA
     Dosage: 375 MG/M2, UNK
  2. MABTHERA [Suspect]
     Dosage: 200 MG, UNK
  3. CYCLOPHOSPHAMIDE [Concomitant]
     Indication: B-CELL LYMPHOMA
  4. PREDNISONE [Concomitant]
     Indication: B-CELL LYMPHOMA
  5. BENDAMUSTINE [Concomitant]
     Indication: BONE MARROW DISORDER

REACTIONS (3)
  - ASPERGILLOSIS [None]
  - BONE MARROW FAILURE [None]
  - FUNGAL INFECTION [None]
